FAERS Safety Report 9683490 (Version 4)
Quarter: 2014Q1

REPORT INFORMATION
  Report Type: Spontaneous
  Country: US (occurrence: US)
  Receive Date: 20131112
  Receipt Date: 20140124
  Transmission Date: 20141002
  Serious: No
  Sender: FDA-Public Use
  Company Number: US-PFIZER INC-2013319660

PATIENT
  Age: 75 Year
  Sex: Female
  Weight: 68.03 kg

DRUGS (4)
  1. PREMARIN [Suspect]
     Indication: HORMONE REPLACEMENT THERAPY
     Dosage: 0.625 MG, 2X/WEEK
     Route: 067
     Dates: start: 2010, end: 201308
  2. PREMARIN [Suspect]
     Indication: MENOPAUSE
  3. METFORMIN [Concomitant]
     Indication: DIABETES MELLITUS
     Dosage: UNK
  4. INSULIN [Concomitant]
     Indication: DIABETES MELLITUS
     Dosage: UNK

REACTIONS (4)
  - Pain [Unknown]
  - Malaise [Unknown]
  - Feeling abnormal [Unknown]
  - Micturition disorder [Unknown]
